FAERS Safety Report 16351524 (Version 2)
Quarter: 2019Q2

REPORT INFORMATION
  Report Type: Spontaneous
  Country: US (occurrence: US)
  Receive Date: 20190524
  Receipt Date: 20190612
  Transmission Date: 20190711
  Serious: No
  Sender: FDA-Public Use
  Company Number: US-AMGEN-USASP2019079655

PATIENT
  Age: 62 Year
  Sex: Female
  Weight: 83.45 kg

DRUGS (1)
  1. PROLIA [Suspect]
     Active Substance: DENOSUMAB
     Indication: OSTEOPOROSIS POSTMENOPAUSAL
     Dosage: 60 MILLIGRAM, Q6MO
     Route: 058
     Dates: start: 20190412

REACTIONS (7)
  - Flatulence [Recovered/Resolved]
  - Urticaria [Not Recovered/Not Resolved]
  - Arthralgia [Unknown]
  - Dyspnoea [Unknown]
  - Urinary tract infection [Recovered/Resolved]
  - Bone pain [Not Recovered/Not Resolved]
  - Pruritus [Not Recovered/Not Resolved]

NARRATIVE: CASE EVENT DATE: 20190412
